FAERS Safety Report 24301150 (Version 1)
Quarter: 2024Q3

REPORT INFORMATION
  Report Type: Spontaneous
  Country: CN (occurrence: CN)
  Receive Date: 20240910
  Receipt Date: 20240910
  Transmission Date: 20241017
  Serious: Yes (Hospitalization)
  Sender: GLAXOSMITHKLINE
  Company Number: CN-GLAXOSMITHKLINE-CN2024APC092056

PATIENT

DRUGS (3)
  1. LAMICTAL [Suspect]
     Active Substance: LAMOTRIGINE
     Indication: Product used for unknown indication
     Dosage: UNK UNK, QD AT NIGHT
     Route: 048
  2. LAMICTAL [Suspect]
     Active Substance: LAMOTRIGINE
     Dosage: 2 DF, BID (DOSAGE OF TWO TABLET IN THE MORNING AND TWO TABLET AT NIGHT)
  3. LAMICTAL [Suspect]
     Active Substance: LAMOTRIGINE
     Dosage: UNK UNK, QD( IN THE MORNING AND NOT IN THE EVENING)

REACTIONS (3)
  - Hospitalisation [Unknown]
  - Heart rate decreased [Not Recovered/Not Resolved]
  - Extra dose administered [Unknown]
